FAERS Safety Report 4888205-7 (Version None)
Quarter: 2006Q1

REPORT INFORMATION
  Report Type: 
  Country: None (occurrence: None)
  Receive Date: 20060123
  Receipt Date: 20060111
  Transmission Date: 20060701
  Serious: Yes (Hospitalization)
  Sender: FDA-Public Use
  Company Number: FR-BRISTOL-MYERS SQUIBB COMPANY-13243597

PATIENT
  Age: 54 Year
  Sex: Female

DRUGS (4)
  1. AMIKACIN SULFATE [Suspect]
     Indication: BARTHOLINITIS
     Route: 042
     Dates: start: 20051109, end: 20051114
  2. FLAGYL [Concomitant]
     Indication: BARTHOLINITIS
     Route: 042
     Dates: start: 20051107, end: 20051116
  3. FORTUM [Concomitant]
     Indication: BARTHOLINITIS
     Route: 042
     Dates: start: 20051107, end: 20051116
  4. TARGOCID [Concomitant]
     Indication: BARTHOLINITIS
     Route: 042
     Dates: start: 20051107, end: 20051116

REACTIONS (1)
  - THROMBOCYTOPENIA [None]
